FAERS Safety Report 5701471-0 (Version None)
Quarter: 2008Q2

REPORT INFORMATION
  Report Type: 
  Country: None (occurrence: None)
  Receive Date: 20080410
  Receipt Date: 20080329
  Transmission Date: 20081010
  Serious: Yes (Hospitalization)
  Sender: FDA-Public Use
  Company Number: FR-GILEAD-2008-0015590

PATIENT
  Sex: Female

DRUGS (4)
  1. TRUVADA [Suspect]
     Indication: HIV INFECTION
     Route: 048
     Dates: start: 20071217, end: 20080303
  2. NORVIR [Concomitant]
     Indication: HIV INFECTION
     Dates: start: 20071217, end: 20080303
  3. TELZIR [Concomitant]
     Indication: HIV INFECTION
     Dates: start: 20071217, end: 20080303
  4. BACTRIM [Concomitant]
     Indication: HIV INFECTION
     Dates: start: 20071217, end: 20080220

REACTIONS (4)
  - BACK PAIN [None]
  - BLOOD CREATININE INCREASED [None]
  - GENITAL INFECTION FEMALE [None]
  - NEPHROLITHIASIS [None]
